FAERS Safety Report 9745457 (Version 1)
Quarter: 2013Q4

REPORT INFORMATION
  Report Type: Spontaneous
  Country: US (occurrence: None)
  Receive Date: 20131206
  Receipt Date: 20131206
  Transmission Date: 20140711
  Serious: Yes (Life-Threatening, Other)
  Sender: FDA-Public Use
  Company Number: None

PATIENT
  Age: 43 Year
  Sex: Male
  Weight: 72.58 kg

DRUGS (2)
  1. ENBREL 50 MG [Suspect]
     Indication: PSORIASIS
     Route: 042
     Dates: start: 20050101
  2. ENBREL 50 MG [Suspect]
     Indication: ARTHRITIS
     Route: 042
     Dates: start: 20050101

REACTIONS (1)
  - Chronic myeloid leukaemia [None]
